FAERS Safety Report 9904197 (Version 1)
Quarter: 2014Q1

REPORT INFORMATION
  Report Type: Spontaneous
  Country: JP (occurrence: JP)
  Receive Date: 20140218
  Receipt Date: 20140218
  Transmission Date: 20141002
  Serious: Yes (Death)
  Sender: FDA-Public Use
  Company Number: JP-ROCHE-1348656

PATIENT
  Age: 74 Year
  Sex: Female
  Weight: 54 kg

DRUGS (1)
  1. PEGASYS [Suspect]
     Indication: HEPATIC CIRRHOSIS
     Route: 058
     Dates: start: 20091110, end: 20120828

REACTIONS (1)
  - Hepatic failure [Fatal]
